FAERS Safety Report 6715992-5 (Version None)
Quarter: 2010Q2

REPORT INFORMATION
  Report Type: 
  Country: None (occurrence: None)
  Receive Date: 20100507
  Receipt Date: 20100426
  Transmission Date: 20101027
  Serious: Yes (Other)
  Sender: FDA-Public Use
  Company Number: US-PFIZER INC-2010040683

PATIENT
  Sex: Female
  Weight: 59.864 kg

DRUGS (3)
  1. DETROL LA [Suspect]
     Indication: HYPERTONIC BLADDER
     Dosage: 4 MG, 1X/DAY
     Dates: start: 20100301, end: 20100312
  2. TOVIAZ [Interacting]
     Indication: HYPERTONIC BLADDER
     Dosage: 4 MG, 1X/DAY
     Route: 048
     Dates: start: 20100312, end: 20100331
  3. ACIPHEX [Concomitant]
     Dosage: UNK

REACTIONS (5)
  - ARRHYTHMIA [None]
  - DRUG ADMINISTRATION ERROR [None]
  - DRUG INTERACTION [None]
  - OSTEOPOROSIS [None]
  - VISION BLURRED [None]
